FAERS Safety Report 5149043-3 (Version None)
Quarter: 2006Q4

REPORT INFORMATION
  Report Type: 
  Country: None (occurrence: None)
  Receive Date: 20061113
  Receipt Date: 20061023
  Transmission Date: 20070319
  Serious: Yes (Life-Threatening, Hospitalization, Disabling)
  Sender: FDA-Public Use
  Company Number: PHMT2006CA02024

PATIENT
  Age: 71 Year
  Sex: Female
  Weight: 50.793 kg

DRUGS (6)
  1. FOLIC ACID [Concomitant]
     Dosage: 5 MG, QD
  2. SYNTHROID [Concomitant]
     Dosage: 50 UG, QD
  3. ATENOLOL [Concomitant]
     Dosage: 50 MG, QD
  4. ALTACE [Concomitant]
     Dosage: 2.5 MG, QD
  5. PANTOLOC ^SOLVAY^ [Concomitant]
     Dosage: 40 MG/KG, QD
  6. EXELON [Suspect]
     Indication: VASCULAR DEMENTIA
     Dosage: 3 MG, BID
     Route: 048
     Dates: start: 20060117, end: 20060919

REACTIONS (2)
  - HYPERTROPHIC CARDIOMYOPATHY [None]
  - MITRAL VALVE INCOMPETENCE [None]
